FAERS Safety Report 19167909 (Version 3)
Quarter: 2021Q2

REPORT INFORMATION
  Report Type: Spontaneous
  Country: US (occurrence: US)
  Receive Date: 20210422
  Receipt Date: 20210604
  Transmission Date: 20210717
  Serious: Yes (Other)
  Sender: FDA-Public Use
  Company Number: US-GLAXOSMITHKLINE-US2021084224

PATIENT
  Sex: Female

DRUGS (1)
  1. NUCALA [Suspect]
     Active Substance: MEPOLIZUMAB
     Indication: ASTHMA
     Dosage: UNK
     Route: 058

REACTIONS (11)
  - Injection site pain [Unknown]
  - Product dose omission issue [Unknown]
  - Pneumonia [Unknown]
  - Hypersensitivity [Recovered/Resolved]
  - Wrong technique in device usage process [Unknown]
  - Injection site pruritus [Unknown]
  - Injection site pruritus [Recovered/Resolved]
  - Incorrect dose administered [Unknown]
  - Dyspnoea exertional [Unknown]
  - Urticaria [Recovered/Resolved]
  - Blood immunoglobulin E increased [Unknown]
